FAERS Safety Report 10550915 (Version 1)
Quarter: 2014Q4

REPORT INFORMATION
  Report Type: Spontaneous
  Country: US (occurrence: US)
  Receive Date: 20141029
  Receipt Date: 20141029
  Transmission Date: 20150529
  Serious: Yes (Death, Other)
  Sender: FDA-Public Use
  Company Number: PHHY2014US139782

PATIENT
  Sex: Male

DRUGS (2)
  1. MYCOPHENOLATE MOFETIL. [Suspect]
     Active Substance: MYCOPHENOLATE MOFETIL
     Indication: PROPHYLAXIS AGAINST GRAFT VERSUS HOST DISEASE
     Dosage: 1000 MG, BID
     Route: 048
  2. CICLOSPORIN [Suspect]
     Active Substance: CYCLOSPORINE
     Indication: PROPHYLAXIS AGAINST GRAFT VERSUS HOST DISEASE
     Dosage: 175 MG, BID
     Route: 048

REACTIONS (15)
  - Papule [Unknown]
  - Diarrhoea [Recovering/Resolving]
  - Condition aggravated [Unknown]
  - Macule [Unknown]
  - Pyrexia [Unknown]
  - Staphylococcal scalded skin syndrome [Unknown]
  - Skin lesion [Unknown]
  - Death [Fatal]
  - Acute kidney injury [Unknown]
  - Pulmonary embolism [Unknown]
  - Acute graft versus host disease [Unknown]
  - Dermatitis exfoliative [Unknown]
  - Skin exfoliation [Recovering/Resolving]
  - Erythema [Unknown]
  - Pneumonia [Unknown]
